FAERS Safety Report 10094385 (Version 2)
Quarter: 2014Q2

REPORT INFORMATION
  Report Type: Spontaneous
  Country: DE (occurrence: None)
  Receive Date: 20140418
  Receipt Date: 20140605
  Transmission Date: 20141212
  Serious: Yes (Other)
  Sender: FDA-Public Use
  Company Number: 2014-19342

PATIENT
  Age: 75 Year
  Sex: Male

DRUGS (1)
  1. EYLEA (AFLIBERCEPT INJECTION) [Suspect]
     Indication: AGE-RELATED MACULAR DEGENERATION
     Dosage: 3RD INJECTION ON 31-JAN-204, INTRAOCULAR
     Route: 031
     Dates: start: 20140131

REACTIONS (4)
  - Lip swelling [None]
  - Induration [None]
  - Oedema mucosal [None]
  - Mucosal induration [None]
